FAERS Safety Report 19005640 (Version 1)
Quarter: 2021Q1

REPORT INFORMATION
  Report Type: Report from Study
  Country: US (occurrence: US)
  Receive Date: 20210313
  Receipt Date: 20210313
  Transmission Date: 20210420
  Serious: Yes (Death, Other)
  Sender: FDA-Public Use
  Company Number: NVSC2021US056192

PATIENT
  Age: 57 Year
  Sex: Male

DRUGS (2)
  1. KYMRIAH [Suspect]
     Active Substance: TISAGENLECLEUCEL
     Indication: DIFFUSE LARGE B-CELL LYMPHOMA
     Dosage: UNK, ONCE/SINGLE
     Route: 065
     Dates: start: 20200505
  2. BENDAMUSTINE [Concomitant]
     Active Substance: BENDAMUSTINE
     Indication: PRODUCT USED FOR UNKNOWN INDICATION
     Dosage: UNK
     Route: 065

REACTIONS (12)
  - Malignant neoplasm progression [Fatal]
  - Pyrexia [Unknown]
  - Haematocrit decreased [Unknown]
  - Diffuse large B-cell lymphoma [Fatal]
  - Thrombocytopenia [Unknown]
  - Cytokine release syndrome [Not Recovered/Not Resolved]
  - Neutropenia [Recovered/Resolved]
  - Lymphocyte count decreased [Unknown]
  - Haemoglobin decreased [Unknown]
  - White blood cell count decreased [Unknown]
  - Hypotension [Unknown]
  - Cytopenia [Unknown]
